FAERS Safety Report 9929841 (Version 2)
Quarter: 2014Q1

REPORT INFORMATION
  Report Type: Spontaneous
  Country: US (occurrence: US)
  Receive Date: 20140227
  Receipt Date: 20140303
  Transmission Date: 20141002
  Serious: Yes (Other)
  Sender: FDA-Public Use
  Company Number: US-ABBVIE-13P-163-1045797-00

PATIENT
  Sex: Female

DRUGS (4)
  1. HUMIRA [Suspect]
     Indication: RHEUMATOID ARTHRITIS
     Dates: start: 2004
  2. HYLATOPICALPLUS [Suspect]
     Indication: PRODUCT USED FOR UNKNOWN INDICATION
  3. DELTASONE [Suspect]
     Indication: RHEUMATOID ARTHRITIS
  4. PREDNISONE [Suspect]
     Indication: RHEUMATOID ARTHRITIS

REACTIONS (10)
  - Hip arthroplasty [Unknown]
  - Dizziness [Unknown]
  - Ear infection [Unknown]
  - Sinusitis [Unknown]
  - Nasal dryness [Unknown]
  - Sinus congestion [Unknown]
  - Skin atrophy [Unknown]
  - Ecchymosis [Unknown]
  - Skin disorder [Unknown]
  - Skin mass [Unknown]
